FAERS Safety Report 4986153-5 (Version None)
Quarter: 2006Q2

REPORT INFORMATION
  Report Type: 
  Country: None (occurrence: None)
  Receive Date: 20060428
  Receipt Date: 20050603
  Transmission Date: 20061013
  Serious: Yes (Hospitalization, Disabling, Other)
  Sender: FDA-Public Use
  Company Number: US-MERCK-0506USA00827

PATIENT
  Age: 55 Year
  Sex: Female
  Weight: 102 kg

DRUGS (1)
  1. VIOXX [Suspect]
     Indication: ARTHRITIS
     Route: 048
     Dates: start: 19990101, end: 20010101

REACTIONS (7)
  - ARTHRITIS [None]
  - CARDIAC DISORDER [None]
  - CHEST PAIN [None]
  - HAEMORRHAGE [None]
  - HYPERTENSION [None]
  - MENTAL DISABILITY [None]
  - MYOCARDIAL INFARCTION [None]
